FAERS Safety Report 23293017 (Version 1)
Quarter: 2023Q4

REPORT INFORMATION
  Report Type: Spontaneous
  Country: CH (occurrence: CH)
  Receive Date: 20231213
  Receipt Date: 20231213
  Transmission Date: 20240110
  Serious: Yes (Other)
  Sender: FDA-Public Use
  Company Number: None

PATIENT
  Age: 78 Year
  Sex: Male

DRUGS (66)
  1. DIFLUCAN [Suspect]
     Active Substance: FLUCONAZOLE
     Indication: Oesophageal candidiasis
     Dosage: 400 MG, 1X/DAY
     Route: 042
     Dates: start: 20231023, end: 20231023
  2. DIFLUCAN [Suspect]
     Active Substance: FLUCONAZOLE
     Dosage: 200 MG, 1X/DAY
     Route: 042
     Dates: start: 20231024, end: 20231027
  3. ROCEPHIN [Suspect]
     Active Substance: CEFTRIAXONE SODIUM
     Dosage: 2 G, 1X/DAY
     Route: 042
     Dates: start: 20231008, end: 20231018
  4. PIPERACILLIN SODIUM\TAZOBACTAM SODIUM [Suspect]
     Active Substance: PIPERACILLIN SODIUM\TAZOBACTAM SODIUM
     Dates: start: 20231008, end: 20231012
  5. XARELTO [Concomitant]
     Active Substance: RIVAROXABAN
     Indication: Atrial fibrillation
     Dosage: 20 MG, 1X/DAY
     Dates: end: 20231008
  6. CRESTATIN [Concomitant]
     Dosage: 10 MG, 1X/DAY
  7. ROSUVASTATIN [Concomitant]
     Active Substance: ROSUVASTATIN
     Dosage: 10 MG, 1X/DAY
     Dates: start: 20231009
  8. TELMISARTAN [Concomitant]
     Active Substance: TELMISARTAN
     Dosage: 40 MG, 1X/DAY
     Dates: end: 20231009
  9. XYZAL [Concomitant]
     Active Substance: LEVOCETIRIZINE DIHYDROCHLORIDE
     Dosage: 0.5 MG, 4X/DAY (EVERY 6H)
     Dates: end: 20231008
  10. XYZAL [Concomitant]
     Active Substance: LEVOCETIRIZINE DIHYDROCHLORIDE
     Dosage: 5 MG, 1X/DAY
     Dates: start: 20231009, end: 20231027
  11. SYMFONA [GINKGO BILOBA ACETONE EXTRACT] [Concomitant]
     Dosage: 240 MG, 1X/DAY
     Dates: end: 20231008
  12. BACTRIM [Concomitant]
     Active Substance: SULFAMETHOXAZOLE\TRIMETHOPRIM
     Dosage: 1X/DAY (ON MONDAYS, WEDNESDAYS AND FRIDAYS)
     Dates: end: 20231008
  13. BACTRIM [Concomitant]
     Active Substance: SULFAMETHOXAZOLE\TRIMETHOPRIM
     Dosage: UNK UNK, 1X/DAY
     Dates: start: 20231008
  14. TIZANIDINE [Concomitant]
     Active Substance: TIZANIDINE
     Dosage: 2 MG, 1X/DAY
     Dates: end: 20231008
  15. TIZANIDINE [Concomitant]
     Active Substance: TIZANIDINE
     Dosage: UNK
     Dates: start: 20231008, end: 20231025
  16. METHOTREXATE [Concomitant]
     Active Substance: METHOTREXATE
     Dosage: 17.5 MG, WEEKLY
     Dates: end: 20231008
  17. FOLIC ACID [Concomitant]
     Active Substance: FOLIC ACID
     Dosage: 5 MG, WEEKLY
     Dates: end: 20231008
  18. FOLIC ACID [Concomitant]
     Active Substance: FOLIC ACID
     Dosage: 5MG
     Dates: end: 20231008
  19. DAFALGAN [Concomitant]
     Active Substance: ACETAMINOPHEN
     Dosage: AS NECESSARY
     Dates: end: 20231008
  20. DAFALGAN [Concomitant]
     Active Substance: ACETAMINOPHEN
     Dosage: 500 MG, AS NECESSARY
     Dates: start: 20231008, end: 20231031
  21. MAGNESIUM [Concomitant]
     Active Substance: MAGNESIUM
     Dosage: UNK UNK, AS NEEDED
     Dates: end: 20231008
  22. MAGNESIUM ASPARTATE HYDROCHLORIDE [Concomitant]
     Active Substance: MAGNESIUM ASPARTATE HYDROCHLORIDE
     Dosage: 10 MMOL
     Dates: start: 20231008, end: 20231025
  23. METOPROLOL [Concomitant]
     Active Substance: METOPROLOL
     Indication: Atrial fibrillation
     Dosage: 25 MG, 2X/DAY (EVERY 12H)
     Dates: start: 20231008
  24. TRANSIPEG [MACROGOL 3350;POTASSIUM CHLORIDE;SODIUM BICARBONATE;SODIUM [Concomitant]
     Dosage: UNK UNK, 1X/DAY
     Dates: start: 20231009
  25. PREDNISOLONE [Concomitant]
     Active Substance: PREDNISOLONE
     Indication: Cutaneous T-cell lymphoma
     Dosage: 25 MG, 1X/DAY
     Dates: start: 20231017
  26. PREDNISOLONE [Concomitant]
     Active Substance: PREDNISOLONE
     Dates: start: 20231017, end: 20231026
  27. ALLOPURINOL [Concomitant]
     Active Substance: ALLOPURINOL
     Dosage: 100 MG, 1X/DAY
     Dates: start: 20231017
  28. PANTOPRAZOLE SODIUM [Concomitant]
     Active Substance: PANTOPRAZOLE SODIUM
     Dosage: 40 MG, 1X/DAY
     Dates: start: 20231022
  29. RESOURCE 2.0+FIBRE [Concomitant]
     Dosage: 100 ML, 4X/DAY (EVERY 6H)
     Dates: start: 20231011
  30. DOMPERIDONE [Concomitant]
     Active Substance: DOMPERIDONE
     Dosage: UNK UNK, AS NEEDED
     Dates: start: 20231008
  31. VALVERDE SCHLAF [Concomitant]
     Dosage: UNK UNK, AS NEEDED
     Dates: start: 20231008
  32. CODEINE PHOSPHATE [Concomitant]
     Active Substance: CODEINE PHOSPHATE
     Dosage: 13.6 MG = 20 GTT ; AS NECESSARY
     Dates: start: 20231011
  33. CODEINE PHOSPHATE [Concomitant]
     Active Substance: CODEINE PHOSPHATE
     Dosage: 13.6 MG = 20 GTT
     Dates: start: 20231019, end: 20231025
  34. HYDROMORPHONE [Concomitant]
     Active Substance: HYDROMORPHONE
     Dosage: AS NECESSARY
     Dates: start: 20231017
  35. METOCLOPRAMIDE HYDROCHLORIDE [Concomitant]
     Active Substance: METOCLOPRAMIDE HYDROCHLORIDE
     Dosage: 10 MG/ 2ML
     Dates: start: 20231014, end: 20231023
  36. METOCLOPRAMIDE HYDROCHLORIDE [Concomitant]
     Active Substance: METOCLOPRAMIDE HYDROCHLORIDE
     Dosage: 10  MG/ 2 ML ; AS NECESSARY
     Dates: start: 20231023
  37. BULBOID [Concomitant]
     Dosage: AS NECESSARY
     Dates: start: 20231009
  38. FREKA-CLYSS [Concomitant]
     Dosage: AS NECESSARY
     Dates: start: 20231009
  39. HEPARIN SODIUM [Concomitant]
     Active Substance: HEPARIN SODIUM
     Dosage: 500 UI/ 5 ML
     Dates: start: 20231018, end: 20231018
  40. SODIUM CHLORIDE [Concomitant]
     Active Substance: SODIUM CHLORIDE
     Dosage: UNK
     Dates: start: 20231009, end: 20231013
  41. SODIUM CHLORIDE [Concomitant]
     Active Substance: SODIUM CHLORIDE
     Dosage: UNK
     Dates: start: 20231015, end: 20231018
  42. SODIUM CHLORIDE [Concomitant]
     Active Substance: SODIUM CHLORIDE
     Dosage: AS NECESSARY
     Dates: start: 20231013, end: 20231025
  43. AMINO ACIDS\DEXTROSE\ELECTROLYTES NOS\SOYBEAN OIL [Concomitant]
     Active Substance: AMINO ACIDS\DEXTROSE\ELECTROLYTES NOS\SOYBEAN OIL
     Indication: Malnutrition
     Dosage: 986 ML, 1X/DAY
     Dates: start: 20231016, end: 20231018
  44. AMINO ACIDS\DEXTROSE\ELECTROLYTES NOS\SOYBEAN OIL [Concomitant]
     Active Substance: AMINO ACIDS\DEXTROSE\ELECTROLYTES NOS\SOYBEAN OIL
     Dosage: 1477 ML
     Dates: start: 20231018, end: 20231026
  45. NALOXONE HYDROCHLORIDE [Concomitant]
     Active Substance: NALOXONE HYDROCHLORIDE
     Dosage: 1 MG/ ML
     Route: 048
     Dates: start: 20231015, end: 20231019
  46. MEGLUMINE IOXITHALAMATE [Concomitant]
     Active Substance: MEGLUMINE IOXITHALAMATE
     Dates: start: 20231014, end: 20231020
  47. THIAMINE HYDROCHLORIDE [Concomitant]
     Active Substance: THIAMINE HYDROCHLORIDE
     Dosage: 300 MG
     Dates: start: 20231016, end: 20231025
  48. HEPARIN CALCIUM [Concomitant]
     Active Substance: HEPARIN CALCIUM
     Dosage: 5000 E/ 2 ML
     Route: 058
     Dates: start: 20231016, end: 20231025
  49. ENOXAPARIN SODIUM [Concomitant]
     Active Substance: ENOXAPARIN SODIUM
     Dosage: 40 MG/ 0.4 ML
     Dates: start: 20231010, end: 20231025
  50. ALTEPLASE [Concomitant]
     Active Substance: ALTEPLASE
     Dates: start: 20231018, end: 20231026
  51. ELECTROLYTES NOS\MINERALS [Concomitant]
     Active Substance: ELECTROLYTES NOS\MINERALS
     Dosage: AS NECESSARY10 ML, AS NEEDED (AS NECESSARY)
     Dates: start: 20231018, end: 20231026
  52. LASIX [Concomitant]
     Active Substance: FUROSEMIDE
     Dosage: 20 MG/ 2 ML
     Dates: start: 20231013, end: 20231026
  53. PALLADONE [Concomitant]
     Active Substance: HYDROMORPHONE HYDROCHLORIDE
     Dates: start: 20231015, end: 20231109
  54. VITAMINS [Concomitant]
     Active Substance: VITAMINS
     Dosage: UNK UNK, 1X/DAY
     Dates: start: 20231016, end: 20231026
  55. ERGOCALCIFEROL\PHYTONADIONE\RETINOL\TOCOPHEROL [Concomitant]
     Active Substance: ERGOCALCIFEROL\PHYTONADIONE\RETINOL\TOCOPHEROL
     Dosage: 10 ML, 1X/DAY
     Dates: start: 20231016, end: 20231026
  56. METAMIZOLE [Concomitant]
     Active Substance: METAMIZOLE
     Dosage: 500 MG
     Dates: start: 20231009, end: 20231027
  57. SODIUM PICOSULFATE [Concomitant]
     Active Substance: SODIUM PICOSULFATE
     Dates: start: 20231009, end: 20231028
  58. BUTYLSCOPOLAMINE BROMIDE [Concomitant]
     Active Substance: BUTYLSCOPOLAMINE BROMIDE
     Dosage: 10 MG AS NEEDED (AS NECESSARY)
     Dates: start: 20231009, end: 20231014
  59. CLOBETASOL [Concomitant]
     Active Substance: CLOBETASOL
     Dates: start: 20231009, end: 20231014
  60. NALOXONE HYDROCHLORIDE\OXYCODONE HYDROCHLORIDE [Concomitant]
     Active Substance: NALOXONE HYDROCHLORIDE\OXYCODONE HYDROCHLORIDE
     Dates: start: 20231014, end: 20231015
  61. OXYCODONE HYDROCHLORIDE [Concomitant]
     Active Substance: OXYCODONE HYDROCHLORIDE
     Dosage: 5 MG AS NEEDED, (AS NECESSARY)
     Dates: start: 20231009, end: 20231015
  62. ALDACTONE [Concomitant]
     Active Substance: SPIRONOLACTONE
     Dosage: 100 MG, 1X/DAY
     Dates: start: 20231013, end: 20231017
  63. MINERAL OIL [Concomitant]
     Active Substance: MINERAL OIL
     Dates: start: 20231009, end: 20231012
  64. HYDROMORPHONE HCL [Concomitant]
     Active Substance: HYDROMORPHONE HYDROCHLORIDE
     Dates: start: 20231015, end: 20231017
  65. RINGER ACETATE [CALCIUM CHLORIDE;MAGNESIUM CHLORIDE;POTASSIUM CHLORIDE [Concomitant]
     Dates: start: 20231016, end: 20231017
  66. AMOXICILLIN\CLAVULANATE POTASSIUM [Concomitant]
     Active Substance: AMOXICILLIN\CLAVULANATE POTASSIUM
     Dates: start: 20230924, end: 20231005

REACTIONS (2)
  - Drug-induced liver injury [Recovering/Resolving]
  - Cardiac failure [Unknown]

NARRATIVE: CASE EVENT DATE: 20230101
